FAERS Safety Report 4554910-5 (Version None)
Quarter: 2004Q4

REPORT INFORMATION
  Report Type: 
  Country: None (occurrence: None)
  Receive Date: 20041222
  Receipt Date: 20040914
  Transmission Date: 20050328
  Serious: Yes (Death, Life-Threatening, Hospitalization)
  Sender: FDA-Public Use
  Company Number: 209063

PATIENT
  Age: 63 Year
  Sex: Female
  Weight: 72.6 kg

DRUGS (5)
  1. AVASTIN [Suspect]
     Indication: COLORECTAL CANCER METASTATIC
     Dosage: 360 MG, QOW, INTRAVENOUS
     Route: 042
     Dates: start: 20030901, end: 20040801
  2. OXALIPLATIN (OXALIPLATIN) [Concomitant]
  3. LEUCOVORIN CALCIUM [Concomitant]
  4. FLUOROURACIL [Concomitant]
  5. NEUPOGEN [Concomitant]

REACTIONS (1)
  - CEREBRAL HAEMORRHAGE [None]
